FAERS Safety Report 25876706 (Version 2)
Quarter: 2025Q4

REPORT INFORMATION
  Report Type: Report from Study
  Country: JP (occurrence: JP)
  Receive Date: 20251003
  Receipt Date: 20251007
  Transmission Date: 20260118
  Serious: Yes (Hospitalization)
  Sender: ALEXION PHARMACEUTICALS
  Company Number: JP-ASTRAZENECA-202508JPN025285JPAA

PATIENT
  Age: 61 Year
  Sex: Male
  Weight: 58.1 kg

DRUGS (3)
  1. DURVALUMAB [Suspect]
     Active Substance: DURVALUMAB
     Indication: Bile duct cancer
  2. GEMCITABINE [Suspect]
     Active Substance: GEMCITABINE
     Indication: Bile duct cancer
  3. CISPLATIN [Suspect]
     Active Substance: CISPLATIN
     Indication: Biliary cancer metastatic
     Dosage: UNK
     Dates: start: 20230217, end: 20230516

REACTIONS (2)
  - Cholangitis [Recovered/Resolved]
  - Biliary obstruction [Recovered/Resolved]

NARRATIVE: CASE EVENT DATE: 20230523
